FAERS Safety Report 7529437-9 (Version None)
Quarter: 2011Q2

REPORT INFORMATION
  Report Type: 
  Country: None (occurrence: None)
  Receive Date: 20110531
  Receipt Date: 20110517
  Transmission Date: 20111010
  Serious: Yes (Life-Threatening, Hospitalization, Other)
  Sender: FDA-Public Use
  Company Number: 2011MA006008

PATIENT
  Age: 17 Year
  Sex: Male

DRUGS (2)
  1. BUPROPION HYDROCHLORIDE [Suspect]
     Indication: BIPOLAR DISORDER
     Dosage: 150 MG;QD
  2. LAMICTAL [Concomitant]

REACTIONS (8)
  - DEPRESSION [None]
  - LOSS OF CONSCIOUSNESS [None]
  - SINUS TACHYCARDIA [None]
  - GRAND MAL CONVULSION [None]
  - ELECTROCARDIOGRAM QT PROLONGED [None]
  - OVERDOSE [None]
  - BUNDLE BRANCH BLOCK RIGHT [None]
  - TONGUE BITING [None]
